FAERS Safety Report 7064803-X (Version None)
Quarter: 2010Q4

REPORT INFORMATION
  Report Type: 
  Country: None (occurrence: None)
  Receive Date: 20101027
  Receipt Date: 19881206
  Transmission Date: 20110411
  Serious: Yes (Death)
  Sender: FDA-Public Use
  Company Number: US-ROCHE-880201426001

PATIENT
  Age: 12 Month
  Sex: Male
  Weight: 6.4 kg

DRUGS (4)
  1. CEFTRIAXONE SODIUM [Suspect]
     Indication: PNEUMONIA
     Route: 042
     Dates: start: 19881203, end: 19881203
  2. PROVENTIL [Concomitant]
     Route: 065
  3. POTASSIUM CHLORIDE [Concomitant]
     Route: 065
  4. ACETAMINOPHEN [Concomitant]
     Route: 048

REACTIONS (2)
  - DISEASE COMPLICATION [None]
  - INJECTION SITE EXTRAVASATION [None]
